FAERS Safety Report 10299543 (Version 3)
Quarter: 2015Q3

REPORT INFORMATION
  Report Type: Spontaneous
  Country: US (occurrence: US)
  Receive Date: 20140711
  Receipt Date: 20150814
  Transmission Date: 20151125
  Serious: No
  Sender: FDA-Public Use
  Company Number: US-GILEAD-2013-0077928

PATIENT
  Age: 75 Year
  Sex: Female

DRUGS (2)
  1. VENTAVIS [Concomitant]
     Active Substance: ILOPROST
  2. LETAIRIS [Suspect]
     Active Substance: AMBRISENTAN
     Indication: PRODUCT USED FOR UNKNOWN INDICATION
     Dosage: 5 MG, QD
     Route: 048
     Dates: start: 20110304

REACTIONS (7)
  - Headache [Unknown]
  - Dizziness [Unknown]
  - Neck pain [Unknown]
  - Nausea [Unknown]
  - Pain in jaw [Unknown]
  - Flushing [Unknown]
  - Musculoskeletal pain [Unknown]
